FAERS Safety Report 14593145 (Version 1)
Quarter: 2018Q1

REPORT INFORMATION
  Report Type: Spontaneous
  Country: GB (occurrence: GB)
  Receive Date: 20180302
  Receipt Date: 20180302
  Transmission Date: 20180509
  Serious: Yes (Other)
  Sender: FDA-Public Use
  Company Number: GB-TEVA-2018-GB-863692

PATIENT
  Age: 51 Year
  Sex: Female
  Weight: 58 kg

DRUGS (5)
  1. FEXOFENADINE [Concomitant]
     Active Substance: FEXOFENADINE\FEXOFENADINE HYDROCHLORIDE
     Dosage: 1 DOSAGE FORMS DAILY;
     Dates: start: 20180104
  2. SALBUTAMOL [Concomitant]
     Active Substance: ALBUTEROL
     Dosage: PUFFS, FOUR TIMES A DAY
     Route: 055
     Dates: start: 20171219
  3. TERBINAFINE. [Concomitant]
     Active Substance: TERBINAFINE
     Dosage: 1 DOSAGE FORMS DAILY;
     Dates: start: 20161201
  4. AMOXICILLIN. [Suspect]
     Active Substance: AMOXICILLIN
     Route: 065
     Dates: start: 20180104
  5. AMLODIPINE [Concomitant]
     Active Substance: AMLODIPINE BESYLATE
     Dosage: 1 DOSAGE FORMS DAILY;
     Dates: start: 20170228

REACTIONS (1)
  - Urticaria chronic [Recovering/Resolving]

NARRATIVE: CASE EVENT DATE: 20180104
